FAERS Safety Report 7226836-X (Version None)
Quarter: 2011Q1

REPORT INFORMATION
  Report Type: 
  Country: None (occurrence: None)
  Receive Date: 20110114
  Receipt Date: 20110103
  Transmission Date: 20110831
  Serious: Yes (Hospitalization, Other)
  Sender: FDA-Public Use
  Company Number: PHHY2011US00627

PATIENT
  Sex: Female

DRUGS (1)
  1. DIOVAN HCT [Suspect]

REACTIONS (3)
  - POST THROMBOTIC SYNDROME [None]
  - SPLENIC INFARCTION [None]
  - INTESTINAL ISCHAEMIA [None]
